FAERS Safety Report 21843485 (Version 1)
Quarter: 2023Q1

REPORT INFORMATION
  Report Type: Spontaneous
  Country: US (occurrence: US)
  Receive Date: 20230110
  Receipt Date: 20230110
  Transmission Date: 20230417
  Serious: No
  Sender: FDA-Public Use
  Company Number: US-drreddys-SPO/USA/22/0159141

PATIENT
  Age: 71 Year
  Sex: Female

DRUGS (8)
  1. LENALIDOMIDE [Suspect]
     Active Substance: LENALIDOMIDE
     Indication: Plasma cell myeloma
     Dosage: TAKE 1 CAPSULE BY MOUTH DAILY ON DAYS 1-21, REPEAT EVERY 28 DAYS
     Route: 048
  2. FAMOTIDINE [Concomitant]
     Active Substance: FAMOTIDINE
     Indication: Product used for unknown indication
  3. SPIRONOLACTONE [Concomitant]
     Active Substance: SPIRONOLACTONE
     Indication: Product used for unknown indication
  4. BIOTIN TAB 10000MCG [Concomitant]
     Indication: Product used for unknown indication
  5. NIFEDIPINE E TB2 30MG [Concomitant]
     Indication: Product used for unknown indication
  6. PEPCID TAB 20MG [Concomitant]
     Indication: Product used for unknown indication
  7. VITAMIN D3 TAB 25MCG [Concomitant]
     Indication: Product used for unknown indication
  8. XANAX TAB 2MG [Concomitant]
     Indication: Product used for unknown indication

REACTIONS (1)
  - Dizziness [Not Recovered/Not Resolved]
